FAERS Safety Report 13992335 (Version 1)
Quarter: 2017Q3

REPORT INFORMATION
  Report Type: Spontaneous
  Country: US (occurrence: US)
  Receive Date: 20170920
  Receipt Date: 20170920
  Transmission Date: 20171128
  Serious: No
  Sender: FDA-Public Use
  Company Number: US-JNJFOC-20170802161

PATIENT
  Age: 62 Year
  Sex: Female
  Weight: 54.89 kg

DRUGS (1)
  1. KETOCONAZOLE. [Suspect]
     Active Substance: KETOCONAZOLE
     Indication: PRURITUS
     Route: 061
     Dates: start: 20170630

REACTIONS (2)
  - Product use in unapproved indication [Unknown]
  - Off label use [Unknown]
